FAERS Safety Report 7338616-5 (Version None)
Quarter: 2011Q1

REPORT INFORMATION
  Report Type: 
  Country: None (occurrence: None)
  Receive Date: 20110304
  Receipt Date: 20110304
  Transmission Date: 20110831
  Serious: Yes (Other)
  Sender: FDA-Public Use
  Company Number: None

PATIENT
  Age: 39 Year
  Sex: Male
  Weight: 60.782 kg

DRUGS (3)
  1. NEURONTIN [Concomitant]
  2. BUPROPION SR 200 MG [Suspect]
     Indication: DYSTHYMIC DISORDER
     Dosage: 200 MG 2AM
     Dates: start: 20000405
  3. MIRTAZAPINE [Suspect]
     Dosage: 15 MG HS
     Dates: start: 20080919

REACTIONS (4)
  - APATHY [None]
  - PRODUCT SUBSTITUTION ISSUE [None]
  - AFFECTIVE DISORDER [None]
  - WEIGHT DECREASED [None]
